FAERS Safety Report 6034326-5 (Version None)
Quarter: 2009Q1

REPORT INFORMATION
  Report Type: 
  Country: None (occurrence: None)
  Receive Date: 20090112
  Receipt Date: 20080211
  Transmission Date: 20090719
  Serious: No
  Sender: FDA-Public Use
  Company Number: US-ABBOTT-08P-163-0438038-00

PATIENT
  Sex: Male
  Weight: 77.18 kg

DRUGS (6)
  1. HYTRIN [Suspect]
     Indication: BENIGN PROSTATIC HYPERPLASIA
     Route: 048
     Dates: start: 20080205
  2. HYTRIN [Suspect]
     Route: 048
     Dates: start: 20080129, end: 20080204
  3. HYTRIN [Suspect]
     Route: 048
     Dates: start: 20080121, end: 20080128
  4. IBUPROFEN TABLETS [Concomitant]
     Indication: JOINT SWELLING
     Route: 048
  5. ATENOLOL [Concomitant]
     Indication: PALPITATIONS
     Route: 048
  6. SIMASTATIN [Concomitant]
     Indication: BLOOD CHOLESTEROL INCREASED
     Route: 048

REACTIONS (4)
  - DRUG INEFFECTIVE [None]
  - JOINT SPRAIN [None]
  - JOINT SWELLING [None]
  - NOCTURIA [None]
